FAERS Safety Report 14715670 (Version 2)
Quarter: 2018Q2

REPORT INFORMATION
  Report Type: Spontaneous
  Country: US (occurrence: US)
  Receive Date: 20180404
  Receipt Date: 20180504
  Transmission Date: 20180711
  Serious: Yes (Other)
  Sender: FDA-Public Use
  Company Number: US-PFIZER INC-2018133951

PATIENT
  Age: 77 Year
  Sex: Female

DRUGS (9)
  1. PREDNISONE. [Suspect]
     Active Substance: PREDNISONE
     Indication: RHEUMATOID ARTHRITIS
     Dosage: 5 MG, UNK
  2. PREDNISONE. [Suspect]
     Active Substance: PREDNISONE
     Dosage: UNK
     Dates: end: 20180124
  3. PREDNISONE. [Suspect]
     Active Substance: PREDNISONE
     Dosage: 6 MG, UNK
  4. XELJANZ XR [Suspect]
     Active Substance: TOFACITINIB CITRATE
     Indication: RHEUMATOID ARTHRITIS
     Dosage: 11 MG, ONCE A DAY
     Route: 048
     Dates: start: 201604
  5. PREDNISONE. [Suspect]
     Active Substance: PREDNISONE
     Dosage: 2 MG, 1X/DAY
     Route: 048
  6. XELJANZ XR [Suspect]
     Active Substance: TOFACITINIB CITRATE
     Dosage: 11 MG, ONCE A DAY
     Route: 048
     Dates: end: 201803
  7. XELJANZ XR [Suspect]
     Active Substance: TOFACITINIB CITRATE
     Dosage: 11 MG, ONCE A DAY
     Route: 048
     Dates: start: 201610, end: 20180224
  8. PREDNISONE. [Suspect]
     Active Substance: PREDNISONE
     Dosage: 3 MG, UNK
  9. PREDNISONE. [Suspect]
     Active Substance: PREDNISONE
     Dosage: 7 MG, UNK

REACTIONS (7)
  - Liver function test increased [Recovered/Resolved]
  - Alanine aminotransferase increased [Unknown]
  - Spinal fracture [Recovering/Resolving]
  - Hepatic enzyme increased [Recovering/Resolving]
  - Red blood cell count decreased [Unknown]
  - Back pain [Recovering/Resolving]
  - Aspartate aminotransferase increased [Unknown]

NARRATIVE: CASE EVENT DATE: 201802
